FAERS Safety Report 25158975 (Version 1)
Quarter: 2025Q2

REPORT INFORMATION
  Report Type: Spontaneous
  Country: KR (occurrence: KR)
  Receive Date: 20250404
  Receipt Date: 20250404
  Transmission Date: 20250717
  Serious: Yes (Hospitalization)
  Sender: ROCHE
  Company Number: KR-ROCHE-10000246219

PATIENT
  Sex: Female

DRUGS (6)
  1. AVASTIN [Suspect]
     Active Substance: BEVACIZUMAB
     Indication: Neoplasm malignant
     Route: 065
     Dates: start: 202401, end: 202403
  2. AVASTIN [Suspect]
     Active Substance: BEVACIZUMAB
     Route: 065
     Dates: start: 202403, end: 202403
  3. CISPLATIN [Suspect]
     Active Substance: CISPLATIN
     Indication: Neoplasm malignant
     Route: 065
     Dates: start: 202401, end: 202403
  4. CISPLATIN [Suspect]
     Active Substance: CISPLATIN
     Route: 065
     Dates: start: 202403, end: 202403
  5. PACLITAXEL [Suspect]
     Active Substance: PACLITAXEL
     Indication: Neoplasm malignant
     Route: 065
     Dates: start: 202401, end: 202403
  6. PACLITAXEL [Suspect]
     Active Substance: PACLITAXEL
     Route: 065
     Dates: start: 202403, end: 202403

REACTIONS (6)
  - Off label use [Unknown]
  - Red blood cell transfusion [Recovered/Resolved]
  - Drug hypersensitivity [Unknown]
  - Stress urinary incontinence [Unknown]
  - Oxygen therapy [Recovered/Resolved]
  - Aspiration pleural cavity [Recovered/Resolved]

NARRATIVE: CASE EVENT DATE: 20240101
